FAERS Safety Report 5018507-5 (Version None)
Quarter: 2006Q2

REPORT INFORMATION
  Report Type: 
  Country: None (occurrence: None)
  Receive Date: 20060414
  Receipt Date: 20060217
  Transmission Date: 20061013
  Serious: No
  Sender: FDA-Public Use
  Company Number: 2006SP000842

PATIENT
  Age: 51 Year
  Sex: Female
  Weight: 73.4827 kg

DRUGS (15)
  1. LUNESTA [Suspect]
     Indication: INSOMNIA
     Dosage: 3 MG;HS;ORAL
     Route: 048
     Dates: start: 20060215
  2. ESTROGENS CONJUGATED [Concomitant]
  3. LORATADINE [Concomitant]
  4. AMLODIPINE [Concomitant]
  5. HYDROCHLOROTHIAZIDE [Concomitant]
  6. ASPIRIN [Concomitant]
  7. ATACAND [Concomitant]
  8. TOPROL-XL [Concomitant]
  9. ATORVASTATIN CALCIUM [Concomitant]
  10. SINGULAIR [Concomitant]
  11. SOMA [Concomitant]
  12. MORPHINE [Concomitant]
  13. DIPHENHYDRAMINE HYDROCHLORIDE [Concomitant]
  14. TEMAZEPAM [Concomitant]
  15. AMITRIPTYLINE HCL [Concomitant]

REACTIONS (2)
  - DYSGEUSIA [None]
  - MIDDLE INSOMNIA [None]
